FAERS Safety Report 4463455-2 (Version None)
Quarter: 2004Q3

REPORT INFORMATION
  Report Type: 
  Country: None (occurrence: None)
  Receive Date: 20040928
  Receipt Date: 20040921
  Transmission Date: 20050211
  Serious: Yes (Hospitalization)
  Sender: FDA-Public Use
  Company Number: 2004S1000104

PATIENT
  Age: 55 Year
  Sex: Female
  Weight: 92.7 kg

DRUGS (14)
  1. CUBICIN [Suspect]
     Indication: BREAST CELLULITIS
     Dosage: 4 MG/KG  Q24H, IV
     Route: 042
     Dates: start: 20040514, end: 20040524
  2. CUBICIN [Suspect]
     Indication: STAPHYLOCOCCAL INFECTION
     Dosage: 4 MG/KG  Q24H, IV
     Route: 042
     Dates: start: 20040514, end: 20040524
  3. SIMVASTATIN [Concomitant]
  4. EFFEXOR [Concomitant]
  5. ESOMEPRAZOLE [Concomitant]
  6. PEPCID [Concomitant]
  7. MIRTAZAPINE [Concomitant]
  8. LIPITOR [Concomitant]
  9. DIFLUCAN [Concomitant]
  10. SYNTHROID [Concomitant]
  11. PRECOSE [Concomitant]
  12. METFORMIN [Concomitant]
  13. INSULIN [Concomitant]
  14. HEPARIN [Concomitant]

REACTIONS (8)
  - ALANINE AMINOTRANSFERASE INCREASED [None]
  - ASPARTATE AMINOTRANSFERASE INCREASED [None]
  - BLOOD CREATININE INCREASED [None]
  - BLOOD POTASSIUM DECREASED [None]
  - CARDIAC INDEX DECREASED [None]
  - COMPARTMENT SYNDROME [None]
  - MUSCLE NECROSIS [None]
  - MYOSITIS [None]
